FAERS Safety Report 9405571 (Version 1)
Quarter: 2013Q3

REPORT INFORMATION
  Report Type: Spontaneous
  Country: FR (occurrence: None)
  Receive Date: 20130715
  Receipt Date: 20130715
  Transmission Date: 20140515
  Serious: Yes (Life-Threatening)
  Sender: FDA-Public Use
  Company Number: 7221625

PATIENT
  Age: 71 Year
  Sex: Female

DRUGS (5)
  1. LEVOTHYROX [Suspect]
     Indication: PRODUCT USED FOR UNKNOWN INDICATION
     Dosage: 1 DF (1 DF, 1 IN-
     Route: 048
     Dates: start: 20130530, end: 20130610
  2. BASDENE [Suspect]
     Indication: HYPERTHYROIDISM
     Dosage: 3 DF (1DF, 3 IN
     Route: 048
     Dates: start: 20130530, end: 20130610
  3. LEXOMIL (BROMAZEPAM) (BROMAZEPAM) [Suspect]
     Route: 048
     Dates: end: 20130610
  4. ALVOCARDYL [Concomitant]
  5. UVEDOSE (COLECALCIFEROL) (COLECALCIFEROL) [Concomitant]

REACTIONS (1)
  - Agranulocytosis [None]
